FAERS Safety Report 6418302-6 (Version None)
Quarter: 2009Q4

REPORT INFORMATION
  Report Type: 
  Country: None (occurrence: None)
  Receive Date: 20091023
  Receipt Date: 20091013
  Transmission Date: 20100525
  Serious: Yes (Other)
  Sender: FDA-Public Use
  Company Number: ADR36442009

PATIENT
  Age: 67 Year
  Sex: Female

DRUGS (4)
  1. SIMVASTATIN [Suspect]
     Indication: BLOOD CHOLESTEROL INCREASED
     Dosage: 40 MG ORAL
     Route: 048
     Dates: start: 20061127, end: 20070620
  2. AMLODIPINE [Concomitant]
  3. ASPIRIN [Concomitant]
  4. PERINDOPRIL [Concomitant]

REACTIONS (6)
  - ANXIETY [None]
  - JOINT SWELLING [None]
  - PETECHIAE [None]
  - RASH [None]
  - SKIN HYPERPIGMENTATION [None]
  - VASCULITIS [None]
